FAERS Safety Report 15726800 (Version 1)
Quarter: 2018Q4

REPORT INFORMATION
  Report Type: Spontaneous
  Country: US (occurrence: US)
  Receive Date: 20181217
  Receipt Date: 20181217
  Transmission Date: 20190205
  Serious: Yes (Hospitalization, Other)
  Sender: FDA-Public Use
  Company Number: US-ACCORD-095875

PATIENT
  Age: 20 Year
  Sex: Female

DRUGS (3)
  1. MYCOPHENOLIC ACID. [Suspect]
     Active Substance: MYCOPHENOLIC ACID
     Indication: IMMUNOSUPPRESSION
  2. TACROLIMUS. [Suspect]
     Active Substance: TACROLIMUS
     Indication: IMMUNOSUPPRESSION
  3. RITUXIMAB. [Suspect]
     Active Substance: RITUXIMAB
     Indication: IMMUNOSUPPRESSION
     Dosage: COMPLETED SIX DOSES

REACTIONS (5)
  - Renal failure [Recovered/Resolved]
  - Ureaplasma infection [Recovered/Resolved]
  - Pyelonephritis acute [Recovered/Resolved]
  - Seizure [Recovered/Resolved]
  - Mood altered [Recovered/Resolved]
